FAERS Safety Report 10693820 (Version 1)
Quarter: 2015Q1

REPORT INFORMATION
  Report Type: Spontaneous
  Country: US (occurrence: US)
  Receive Date: 20150106
  Receipt Date: 20150106
  Transmission Date: 20150721
  Serious: Yes (Other)
  Sender: FDA-Public Use
  Company Number: US-ASTRAZENECA-2014SE99527

PATIENT
  Age: 89 Year
  Sex: Male
  Weight: 66.7 kg

DRUGS (3)
  1. BRILINTA [Suspect]
     Active Substance: TICAGRELOR
     Indication: STENT PLACEMENT
     Route: 048
     Dates: start: 201405
  2. BRILINTA [Suspect]
     Active Substance: TICAGRELOR
     Indication: CATHETERISATION CARDIAC
     Route: 048
     Dates: start: 201405
  3. ASPIRIN. [Concomitant]
     Active Substance: ASPIRIN
     Indication: DRUG THERAPY

REACTIONS (2)
  - Actinic keratosis [Unknown]
  - Skin lesion [Unknown]

NARRATIVE: CASE EVENT DATE: 201411
